FAERS Safety Report 5710617-X (Version None)
Quarter: 2008Q2

REPORT INFORMATION
  Report Type: 
  Country: None (occurrence: None)
  Receive Date: 20080415
  Receipt Date: 20080404
  Transmission Date: 20081010
  Serious: Yes (Other)
  Sender: FDA-Public Use
  Company Number: CHNY2008FR01547

PATIENT
  Age: 22 Year
  Sex: Female
  Weight: 29 kg

DRUGS (1)
  1. SCOPODERM TTS (NCH) (HYSCINE HYDROBROMIDE) TRANS-THERAPEUTIC-SYSTEM [Suspect]
     Indication: SALIVARY HYPERSECRETION
     Dosage: 1 MG, Q72H, TRANSDERMAL
     Route: 062

REACTIONS (2)
  - URINARY RETENTION [None]
  - URINARY TRACT INFECTION [None]
